FAERS Safety Report 20526398 (Version 1)
Quarter: 2022Q1

REPORT INFORMATION
  Report Type: Spontaneous
  Country: US (occurrence: US)
  Receive Date: 20220228
  Receipt Date: 20220228
  Transmission Date: 20220424
  Serious: Yes (Hospitalization, Other)
  Sender: FDA-Public Use
  Company Number: US-SA-SAC20220225000053

PATIENT
  Age: 73 Year
  Sex: Female

DRUGS (18)
  1. PLAVIX [Suspect]
     Active Substance: CLOPIDOGREL BISULFATE
     Indication: Product used for unknown indication
  2. KORLYM [Suspect]
     Active Substance: MIFEPRISTONE
     Indication: Product used for unknown indication
     Dosage: 150 MG, QD
  3. HUMALOG [Concomitant]
     Active Substance: INSULIN LISPRO
  4. INVOKANA [Concomitant]
     Active Substance: CANAGLIFLOZIN
  5. ISOSORBIDE MONONITRATE [Concomitant]
     Active Substance: ISOSORBIDE MONONITRATE
  6. LEVEMIR [Concomitant]
     Active Substance: INSULIN DETEMIR
  7. LEVOTHYROXINE [Concomitant]
     Active Substance: LEVOTHYROXINE
  8. LISINOPRIL [Concomitant]
     Active Substance: LISINOPRIL
  9. MELATONIN [Concomitant]
     Active Substance: MELATONIN
  10. METOPROLOL [Concomitant]
     Active Substance: METOPROLOL
  11. OZEMPIC [Concomitant]
     Active Substance: SEMAGLUTIDE
  12. PANTOPRAZOLE [Concomitant]
     Active Substance: PANTOPRAZOLE
  13. PROVENTIL [Concomitant]
     Active Substance: ALBUTEROL
  14. SINGULAIR [Concomitant]
     Active Substance: MONTELUKAST SODIUM
  15. TORSEMIDE [Concomitant]
     Active Substance: TORSEMIDE
     Indication: Hypertension
  16. TETRACYCLINE HYDROCHLORIDE [Concomitant]
     Active Substance: TETRACYCLINE HYDROCHLORIDE
  17. VITAMIN D NOS [Concomitant]
     Active Substance: VITAMIN D NOS
  18. ZOLOFT [Concomitant]
     Active Substance: SERTRALINE HYDROCHLORIDE

REACTIONS (8)
  - Arrhythmia [Unknown]
  - Palpitations [Unknown]
  - Pain [Unknown]
  - Atrial fibrillation [Unknown]
  - Cardiac disorder [Unknown]
  - Metabolic surgery [Unknown]
  - Incorrect dose administered [Unknown]
  - Therapy interrupted [Unknown]
